FAERS Safety Report 10637824 (Version 2)
Quarter: 2019Q4

REPORT INFORMATION
  Report Type: Spontaneous
  Country: IT (occurrence: IT)
  Receive Date: 20141208
  Receipt Date: 20191206
  Transmission Date: 20200122
  Serious: Yes (Death, Hospitalization, Other)
  Sender: FDA-Public Use
  Company Number: IT-MYLANLABS-2014M1012355

PATIENT
  Age: 59 Year
  Sex: Male

DRUGS (3)
  1. OLANZAPINE. [Suspect]
     Active Substance: OLANZAPINE
     Indication: INTELLECTUAL DISABILITY
     Dosage: UNKNOWN DOSE
  2. LORAZEPAM. [Suspect]
     Active Substance: LORAZEPAM
     Indication: INTELLECTUAL DISABILITY
  3. BIPERIDENE [Suspect]
     Active Substance: BIPERIDEN
     Indication: INTELLECTUAL DISABILITY
     Dosage: UNK

REACTIONS (3)
  - Peritonitis [Unknown]
  - Large intestine perforation [Unknown]
  - Megacolon [Fatal]
